FAERS Safety Report 9321548 (Version 2)
Quarter: 2013Q3

REPORT INFORMATION
  Report Type: Spontaneous
  Country: US (occurrence: US)
  Receive Date: 20130531
  Receipt Date: 20130809
  Transmission Date: 20140515
  Serious: Yes (Hospitalization)
  Sender: FDA-Public Use
  Company Number: US-NOVOPROD-378845

PATIENT
  Age: 55 Year
  Sex: Female
  Weight: 81.63 kg

DRUGS (9)
  1. NORDITROPIN FLEXPRO 3.3 MG/ML [Suspect]
     Indication: HYPOPITUITARISM
     Dosage: UNKNOWN
     Route: 058
     Dates: start: 2009, end: 201005
  2. NORDITROPIN FLEXPRO 3.3 MG/ML [Suspect]
     Dosage: 0.4 MG QD
     Route: 058
     Dates: start: 201005
  3. DIOVAN [Concomitant]
     Indication: PRODUCT USED FOR UNKNOWN INDICATION
     Dosage: 160 MG QD
  4. HYDROCHLOROTHIAZIDE [Concomitant]
     Indication: PRODUCT USED FOR UNKNOWN INDICATION
     Dosage: 25 MG QD
  5. VERAPAMIL [Concomitant]
     Indication: PRODUCT USED FOR UNKNOWN INDICATION
     Dosage: 200 MG QD
  6. ASPIRIN [Concomitant]
     Indication: PRODUCT USED FOR UNKNOWN INDICATION
     Dosage: 81 MG QD
  7. LEXAPRO [Concomitant]
     Indication: PRODUCT USED FOR UNKNOWN INDICATION
     Dosage: 20 MG QD
  8. ALLEGRA [Concomitant]
     Indication: PRODUCT USED FOR UNKNOWN INDICATION
     Dosage: AS NEEDED
  9. IMITREX                            /01044801/ [Concomitant]
     Indication: PRODUCT USED FOR UNKNOWN INDICATION
     Dosage: AS NEEDED

REACTIONS (2)
  - Cardiac disorder [Recovered/Resolved]
  - Coma [Recovered/Resolved]
